FAERS Safety Report 7631606-4 (Version None)
Quarter: 2011Q3

REPORT INFORMATION
  Report Type: 
  Country: None (occurrence: None)
  Receive Date: 20110701
  Receipt Date: 20110113
  Transmission Date: 20111222
  Serious: Yes (Other)
  Sender: FDA-Public Use
  Company Number: 7030987

PATIENT
  Age: 61 Year
  Sex: Male

DRUGS (2)
  1. NITROGLYCERIN [Concomitant]
  2. REBIF [Suspect]
     Indication: MULTIPLE SCLEROSIS
     Dosage: 44 MCG, 3 IN 1 WK, SUBCUTANEOUS
     Route: 058
     Dates: start: 20090129

REACTIONS (11)
  - DYSGRAPHIA [None]
  - FALL [None]
  - DYSPNOEA [None]
  - TRANSIENT ISCHAEMIC ATTACK [None]
  - CENTRAL NERVOUS SYSTEM LESION [None]
  - GAIT DISTURBANCE [None]
  - NASOPHARYNGITIS [None]
  - CAROTID ARTERY OCCLUSION [None]
  - HYPOAESTHESIA [None]
  - SPEECH DISORDER [None]
  - WHEEZING [None]
